FAERS Safety Report 17256860 (Version 1)
Quarter: 2020Q1

REPORT INFORMATION
  Report Type: Spontaneous
  Country: DE (occurrence: DE)
  Receive Date: 20200110
  Receipt Date: 20200110
  Transmission Date: 20200409
  Serious: Yes (Hospitalization, Other)
  Sender: FDA-Public Use
  Company Number: DE-TEVA-2020-DE-1166092

PATIENT
  Age: 42 Year
  Sex: Male

DRUGS (2)
  1. DULOXETIN-RATIOPHARM 60 MG MAGENSAFTRESISTENTE HARTKAPSELN [Suspect]
     Active Substance: DULOXETINE HYDROCHLORIDE
     Indication: PANIC ATTACK
     Dosage: 60 MILLIGRAM DAILY;
     Route: 048
     Dates: start: 2018
  2. TROMCARDIN TABLETTEN [Concomitant]
     Route: 065

REACTIONS (1)
  - Atrial fibrillation [Recovered/Resolved]

NARRATIVE: CASE EVENT DATE: 201910
